FAERS Safety Report 15690977 (Version 3)
Quarter: 2019Q1

REPORT INFORMATION
  Report Type: Spontaneous
  Country: FR (occurrence: FR)
  Receive Date: 20181205
  Receipt Date: 20190208
  Transmission Date: 20190417
  Serious: Yes (Life-Threatening, Hospitalization, Other)
  Sender: FDA-Public Use
  Company Number: FR-SAKK-2018SA331923AA

PATIENT
  Age: 63 Year
  Sex: Female

DRUGS (2)
  1. RIFAMPICIN [Suspect]
     Active Substance: RIFAMPIN
     Indication: MEDICAL DEVICE SITE JOINT INFECTION
     Dosage: 600 + 800 MG
     Route: 048
     Dates: start: 20181001, end: 20181101
  2. TARGOCID [Suspect]
     Active Substance: TEICOPLANIN
     Indication: MEDICAL DEVICE SITE JOINT INFECTION
     Route: 048
     Dates: start: 20181005, end: 20181106

REACTIONS (7)
  - Generalised erythema [Not Recovered/Not Resolved]
  - Eosinophilia [Recovered/Resolved]
  - Traumatic lung injury [Recovered/Resolved]
  - Pruritus [Not Recovered/Not Resolved]
  - Renal failure [Not Recovered/Not Resolved]
  - Drug reaction with eosinophilia and systemic symptoms [Recovered/Resolved]
  - Rash [Recovered/Resolved]

NARRATIVE: CASE EVENT DATE: 20181101
